FAERS Safety Report 7914663-7 (Version None)
Quarter: 2011Q4

REPORT INFORMATION
  Report Type: 
  Country: None (occurrence: None)
  Receive Date: 20111115
  Receipt Date: 20111108
  Transmission Date: 20120403
  Serious: Yes (Life-Threatening, Hospitalization)
  Sender: FDA-Public Use
  Company Number: PHHY2011US37041

PATIENT
  Sex: Male

DRUGS (4)
  1. SIMVASTATIN [Concomitant]
     Dosage: UNK UKN, UNK
  2. LOVAZA [Concomitant]
  3. GILENYA [Suspect]
     Indication: MULTIPLE SCLEROSIS
     Dosage: 0.5 MG, QD
     Route: 048
     Dates: start: 20101216, end: 20111003
  4. OMEPRAZOLE [Concomitant]
     Dosage: UNK UKN, UNK

REACTIONS (6)
  - URINARY TRACT INFECTION [None]
  - CELLULITIS [None]
  - SEPSIS [None]
  - TOXIC SHOCK SYNDROME [None]
  - RENAL FAILURE [None]
  - PYREXIA [None]
